FAERS Safety Report 16419981 (Version 3)
Quarter: 2019Q2

REPORT INFORMATION
  Report Type: Spontaneous
  Country: US (occurrence: US)
  Receive Date: 20190612
  Receipt Date: 20190627
  Transmission Date: 20190711
  Serious: Yes (Other)
  Sender: FDA-Public Use
  Company Number: US-BAYER-2019-112985

PATIENT
  Age: 24 Year
  Sex: Female
  Weight: 76.6 kg

DRUGS (2)
  1. MIRENA [Suspect]
     Active Substance: LEVONORGESTREL
     Indication: CONTRACEPTION
     Dosage: 20 MCG/24HR, CONT
     Route: 015
     Dates: start: 20190514, end: 20190605
  2. MIRENA [Suspect]
     Active Substance: LEVONORGESTREL
     Indication: CONTRACEPTION

REACTIONS (5)
  - Device expulsion [Recovered/Resolved]
  - Dysmenorrhoea [None]
  - Genital haemorrhage [None]
  - Vaginal odour [None]
  - Vaginal haemorrhage [None]

NARRATIVE: CASE EVENT DATE: 2019
